FAERS Safety Report 15454419 (Version 1)
Quarter: 2018Q4

REPORT INFORMATION
  Report Type: Other
  Country: ES (occurrence: ES)
  Receive Date: 20181002
  Receipt Date: 20181002
  Transmission Date: 20190204
  Serious: Yes (Life-Threatening, Hospitalization)
  Sender: FDA-Public Use
  Company Number: ES-APOTEX-2018AP021547

PATIENT
  Age: 41 Year
  Sex: Male

DRUGS (6)
  1. LITHIUM CHLORIDE [Interacting]
     Active Substance: LITHIUM CHLORIDE
     Indication: INTENTIONAL OVERDOSE
     Dosage: 20 G, QD
     Route: 048
     Dates: start: 20160316, end: 20160316
  2. MIRTAZAPINA [Concomitant]
     Active Substance: MIRTAZAPINE
     Indication: BIPOLAR DISORDER
     Dosage: 30 MG, QD
     Route: 048
     Dates: start: 20160302, end: 20160315
  3. QUETIAPINE. [Suspect]
     Active Substance: QUETIAPINE
     Indication: INTENTIONAL OVERDOSE
     Dosage: 16 G, QD. IN TOTAL
     Route: 048
     Dates: start: 20160316, end: 20160316
  4. FLUOXETINA                         /00724401/ [Concomitant]
     Indication: BIPOLAR DISORDER
     Dosage: 20 MG, QD
     Route: 048
     Dates: start: 20160302, end: 20160315
  5. LORMETAZEPAM [Concomitant]
     Active Substance: LORMETAZEPAM
     Indication: BIPOLAR DISORDER
     Dosage: 2 MG, QD
     Route: 048
     Dates: start: 20160302, end: 20160315
  6. CLONAZEPAM. [Concomitant]
     Active Substance: CLONAZEPAM
     Indication: BIPOLAR DISORDER
     Dosage: 1 MG, QD
     Route: 048
     Dates: start: 20160302, end: 20160315

REACTIONS (2)
  - Intentional overdose [Recovered/Resolved]
  - Conduct disorder [Recovered/Resolved]

NARRATIVE: CASE EVENT DATE: 20160316
